FAERS Safety Report 6112675-X (Version None)
Quarter: 2009Q1

REPORT INFORMATION
  Report Type: 
  Country: None (occurrence: None)
  Receive Date: 20090312
  Receipt Date: 20090303
  Transmission Date: 20090719
  Serious: Yes (Death)
  Sender: FDA-Public Use
  Company Number: US-BAYER-US-2007-006379

PATIENT
  Age: 77 Year
  Sex: Female
  Weight: 85 kg

DRUGS (5)
  1. MAGNEVIST [Suspect]
     Indication: NUCLEAR MAGNETIC RESONANCE IMAGING
     Dosage: TOTAL DAILY DOSE: 20 ML  UNIT DOSE: 20 ML
     Route: 042
     Dates: start: 20010203, end: 20010203
  2. MAGNEVIST [Suspect]
     Dosage: TOTAL DAILY DOSE: 60 ML  UNIT DOSE: 60 ML
     Route: 042
     Dates: start: 20021001, end: 20021001
  3. COUMADIN [Concomitant]
     Dates: start: 20021007
  4. LEVAQUIN [Concomitant]
     Indication: PNEUMONIA
  5. BETA BLOCKING AGENTS [Concomitant]

REACTIONS (18)
  - ANHEDONIA [None]
  - ANXIETY [None]
  - AXONAL NEUROPATHY [None]
  - EMOTIONAL DISTRESS [None]
  - FIBROSIS [None]
  - GAIT DISTURBANCE [None]
  - GENERAL PHYSICAL HEALTH DETERIORATION [None]
  - JOINT CONTRACTURE [None]
  - JOINT RANGE OF MOTION DECREASED [None]
  - MOBILITY DECREASED [None]
  - MUSCLE ATROPHY [None]
  - MUSCLE TIGHTNESS [None]
  - NEPHROGENIC SYSTEMIC FIBROSIS [None]
  - PAIN [None]
  - SKIN FIBROSIS [None]
  - SKIN HYPERPIGMENTATION [None]
  - SKIN HYPERTROPHY [None]
  - SKIN INDURATION [None]
